FAERS Safety Report 10049282 (Version 1)
Quarter: 2014Q2

REPORT INFORMATION
  Report Type: Spontaneous
  Country: US (occurrence: US)
  Receive Date: 20140401
  Receipt Date: 20140401
  Transmission Date: 20141212
  Serious: Yes (Hospitalization)
  Sender: FDA-Public Use
  Company Number: US-BIOGENIDEC-2014BI027336

PATIENT
  Age: 67 Year
  Sex: Female

DRUGS (1)
  1. TECFIDERA [Suspect]
     Indication: MULTIPLE SCLEROSIS
     Route: 048
     Dates: start: 201309

REACTIONS (7)
  - Cystitis [Unknown]
  - Faecal incontinence [Unknown]
  - Tremor [Unknown]
  - Constipation [Unknown]
  - Fall [Unknown]
  - Contusion [Unknown]
  - Mental impairment [Unknown]
